FAERS Safety Report 24133435 (Version 1)
Quarter: 2024Q3

REPORT INFORMATION
  Report Type: Spontaneous
  Country: FR (occurrence: FR)
  Receive Date: 20240724
  Receipt Date: 20240724
  Transmission Date: 20241017
  Serious: Yes (Hospitalization)
  Sender: SANDOZ
  Company Number: None

PATIENT
  Age: 54 Year
  Sex: Female
  Weight: 71 kg

DRUGS (5)
  1. CYCLOPHOSPHAMIDE [Suspect]
     Active Substance: CYCLOPHOSPHAMIDE
     Indication: Triple negative breast cancer
     Dosage: ROUTE OF ADMIN (FREE TEXT): INTRAVEINEUX
     Route: 065
     Dates: start: 20240426
  2. CYCLOPHOSPHAMIDE [Suspect]
     Active Substance: CYCLOPHOSPHAMIDE
     Dosage: ROUTE OF ADMIN (FREE TEXT): INTRAVEINEUX
     Route: 065
     Dates: start: 20240426
  3. EPIRUBICIN [Suspect]
     Active Substance: EPIRUBICIN
     Indication: Triple negative breast cancer
     Dosage: ROUTE OF ADMIN (FREE TEXT): INTRAVEINEUX
     Route: 065
     Dates: start: 20240426
  4. PEMBROLIZUMAB [Suspect]
     Active Substance: PEMBROLIZUMAB
     Indication: Triple negative breast cancer
     Dosage: ROUTE OF ADMIN (FREE TEXT): INTRAVEINEUX
     Route: 065
     Dates: start: 20240426
  5. PEMBROLIZUMAB [Suspect]
     Active Substance: PEMBROLIZUMAB
     Dosage: ROUTE OF ADMIN (FREE TEXT): INTRAVEINEUX
     Route: 065
     Dates: start: 20240426

REACTIONS (1)
  - Febrile bone marrow aplasia [Recovered/Resolved]

NARRATIVE: CASE EVENT DATE: 20240503
